FAERS Safety Report 9693823 (Version 4)
Quarter: 2014Q3

REPORT INFORMATION
  Report Type: Report from Study
  Country: MX (occurrence: MX)
  Receive Date: 20131118
  Receipt Date: 20140718
  Transmission Date: 20150326
  Serious: Yes (Other)
  Sender: FDA-Public Use
  Company Number: PHHY2013MX061975

PATIENT
  Age: 81 Year
  Sex: Female

DRUGS (9)
  1. DIOVAN [Suspect]
     Active Substance: VALSARTAN
     Indication: HYPERTENSION
     Dosage: 1 TABLET (320MG), DAILY
     Route: 048
     Dates: start: 2012
  2. DIOVAN [Suspect]
     Active Substance: VALSARTAN
     Dosage: 0.5 TABLET (320 MG) IN THE MORNING AND 0.5 TABLET (320 MG) AT NIGHT
  3. CRESTOR [Concomitant]
     Active Substance: ROSUVASTATIN CALCIUM
     Indication: BLOOD CHOLESTEROL ABNORMAL
     Dosage: 1 DF, DAILY
     Dates: start: 2009
  4. NOVOTIRAL [Concomitant]
     Active Substance: LEVOTHYROXINE
     Indication: HYPOTHYROIDISM
     Dosage: 0.5 DF, DAILY
  5. LASIX [Concomitant]
     Active Substance: FUROSEMIDE
     Indication: DIURETIC THERAPY
     Dosage: 0.5 DF, DAILY
     Dates: start: 2011
  6. DIOVAN [Suspect]
     Active Substance: VALSARTAN
     Dosage: 0.5 DF (320 MG), DAILY
  7. ADALAT [Concomitant]
     Active Substance: NIFEDIPINE
     Indication: HYPERTENSION
     Dosage: 1 DF, DAILY
     Dates: start: 2012
  8. ADALAT [Concomitant]
     Active Substance: NIFEDIPINE
     Dosage: 0.5 DF, QD (EVERY NIGHT)
  9. RIVOTRIL [Concomitant]
     Active Substance: CLONAZEPAM
     Indication: INSOMNIA
     Dosage: 1 DF, DAILY
     Dates: start: 2004

REACTIONS (6)
  - Fall [Recovered/Resolved]
  - Blood pressure decreased [Recovered/Resolved]
  - Drug prescribing error [Not Recovered/Not Resolved]
  - Femur fracture [Recovered/Resolved]
  - Oedema peripheral [Recovered/Resolved]
  - Wrong technique in drug usage process [Not Recovered/Not Resolved]

NARRATIVE: CASE EVENT DATE: 201307
